FAERS Safety Report 21666807 (Version 2)
Quarter: 2022Q4

REPORT INFORMATION
  Report Type: Other
  Country: JP (occurrence: JP)
  Receive Date: 20221201
  Receipt Date: 20221207
  Transmission Date: 20230112
  Serious: Yes (Death, Other)
  Sender: FDA-Public Use
  Company Number: JP-CHUGAI-2022047684AA

PATIENT
  Age: 67 Year

DRUGS (2)
  1. ATEZOLIZUMAB [Suspect]
     Active Substance: ATEZOLIZUMAB
     Indication: Hepatocellular carcinoma
     Dosage: 1200 MILLIGRAM, MOST RECENT DOSE 09/DEC/2021
     Route: 041
     Dates: start: 20210916, end: 20211209
  2. BEVACIZUMAB [Suspect]
     Active Substance: BEVACIZUMAB
     Indication: Hepatocellular carcinoma
     Dosage: 744 MILLIGRAM, MOST RECENT DOSE 09/DEC/2021
     Route: 041
     Dates: start: 20210916, end: 20211209

REACTIONS (4)
  - Colitis [Fatal]
  - Diarrhoea [Fatal]
  - Immune-mediated enterocolitis [Unknown]
  - Perforation [Unknown]

NARRATIVE: CASE EVENT DATE: 20211014
